FAERS Safety Report 17569069 (Version 2)
Quarter: 2020Q1

REPORT INFORMATION
  Report Type: Report from Study
  Country: US (occurrence: US)
  Receive Date: 20200322
  Receipt Date: 20200327
  Transmission Date: 20200409
  Serious: No
  Sender: FDA-Public Use
  Company Number: NVSC2020US076921

PATIENT
  Sex: Female

DRUGS (1)
  1. RYDAPT [Suspect]
     Active Substance: MIDOSTAURIN
     Indication: ACUTE MYELOID LEUKAEMIA
     Dosage: 2 DF, BID (FOR 14 DAYS)
     Route: 048

REACTIONS (3)
  - Polyuria [Unknown]
  - Insomnia [Unknown]
  - Vomiting [Unknown]
